FAERS Safety Report 7883784-X (Version None)
Quarter: 2011Q4

REPORT INFORMATION
  Report Type: 
  Country: None (occurrence: None)
  Receive Date: 20111031
  Receipt Date: 20111021
  Transmission Date: 20120403
  Serious: Yes (Other)
  Sender: FDA-Public Use
  Company Number: GB-ACCORD-011094

PATIENT
  Age: 55 Year
  Sex: Female

DRUGS (1)
  1. LETROZOLE [Suspect]
     Indication: PRODUCT USED FOR UNKNOWN INDICATION

REACTIONS (4)
  - BREAST CANCER METASTATIC [None]
  - METASTASES TO BONE [None]
  - NEOPLASM PROGRESSION [None]
  - HEPATIC LESION [None]
